FAERS Safety Report 6983708-3 (Version None)
Quarter: 2010Q3

REPORT INFORMATION
  Report Type: 
  Country: None (occurrence: None)
  Receive Date: 20100914
  Receipt Date: 20051125
  Transmission Date: 20110219
  Serious: Yes (Life-Threatening, Hospitalization)
  Sender: FDA-Public Use
  Company Number: US-WYE-H07164208

PATIENT
  Age: 67 Year
  Sex: Male
  Weight: 155.6 kg

DRUGS (1)
  1. ADVIL LIQUI-GELS [Suspect]

REACTIONS (1)
  - GASTROINTESTINAL HAEMORRHAGE [None]
